FAERS Safety Report 25865838 (Version 2)
Quarter: 2025Q4

REPORT INFORMATION
  Report Type: Report from Study
  Country: US (occurrence: US)
  Receive Date: 20250930
  Receipt Date: 20251008
  Transmission Date: 20260117
  Serious: No
  Sender: MALLINCKRODT
  Company Number: US-MALLINCKRODT-MNK202505674

PATIENT
  Age: 59 Year
  Sex: Female

DRUGS (1)
  1. CORTICOTROPIN [Suspect]
     Active Substance: CORTICOTROPIN
     Indication: Systemic lupus erythematosus
     Dosage: 40 UNITS
     Route: 058
     Dates: start: 20250806

REACTIONS (7)
  - Dyspepsia [Unknown]
  - Peripheral swelling [Unknown]
  - Swelling [Unknown]
  - Swelling face [Unknown]
  - Increased appetite [Unknown]
  - Injection site pain [Unknown]
  - Rash [Unknown]

NARRATIVE: CASE EVENT DATE: 20250101
